FAERS Safety Report 4381898-2 (Version None)
Quarter: 2004Q2

REPORT INFORMATION
  Report Type: 
  Country: None (occurrence: None)
  Receive Date: 20040615
  Receipt Date: 20040429
  Transmission Date: 20050107
  Serious: Yes (Life-Threatening)
  Sender: FDA-Public Use
  Company Number: 2004UW07103

PATIENT
  Age: 36 Year
  Sex: Female

DRUGS (2)
  1. SEROQUEL [Suspect]
     Indication: SCHIZOAFFECTIVE DISORDER
     Dosage: 800 MG PO; 700 MG PO; 400 MG PO
     Route: 048
     Dates: start: 20031101, end: 20031208
  2. ZYPREXA [Concomitant]

REACTIONS (4)
  - DYSPNOEA [None]
  - DYSTONIA [None]
  - LARYNGEAL DISORDER [None]
  - NASOPHARYNGEAL DISORDER [None]
